FAERS Safety Report 18505667 (Version 2)
Quarter: 2020Q4

REPORT INFORMATION
  Report Type: Report from Study
  Country: DE (occurrence: DE)
  Receive Date: 20201116
  Receipt Date: 20201119
  Transmission Date: 20210114
  Serious: Yes (Death, Life-Threatening, Other)
  Sender: FDA-Public Use
  Company Number: NVSC2020DE085470

PATIENT
  Sex: Female
  Weight: 66 kg

DRUGS (5)
  1. INC280 [Suspect]
     Active Substance: CAPMATINIB
     Dosage: 200 MG, BID
     Route: 048
     Dates: start: 20200322, end: 20200322
  2. GEFITINIB. [Concomitant]
     Active Substance: GEFITINIB
     Indication: NON-SMALL CELL LUNG CANCER
     Dosage: 250 MG
     Route: 065
     Dates: start: 20200305, end: 20200321
  3. INC280 [Suspect]
     Active Substance: CAPMATINIB
     Indication: NON-SMALL CELL LUNG CANCER
     Dosage: 400 MG, BID
     Route: 048
     Dates: start: 20200305
  4. INC280 [Suspect]
     Active Substance: CAPMATINIB
     Dosage: UNK UNK, BID
     Route: 048
     Dates: start: 20200305
  5. CRIZOTINIB [Concomitant]
     Active Substance: CRIZOTINIB
     Indication: PRODUCT USED FOR UNKNOWN INDICATION
     Dosage: 250 UNK
     Route: 065
     Dates: start: 20200421, end: 20200702

REACTIONS (2)
  - Metastases to central nervous system [Fatal]
  - Headache [Unknown]

NARRATIVE: CASE EVENT DATE: 20200321
